FAERS Safety Report 5729592-7 (Version None)
Quarter: 2008Q2

REPORT INFORMATION
  Report Type: 
  Country: None (occurrence: None)
  Receive Date: 20080506
  Receipt Date: 20080429
  Transmission Date: 20081010
  Serious: Yes (Other)
  Sender: FDA-Public Use
  Company Number: US-MERCK-0705USA05361

PATIENT
  Age: 54 Year
  Sex: Female

DRUGS (4)
  1. FOSAMAX [Suspect]
     Indication: OSTEOPENIA
     Route: 048
     Dates: start: 19970401, end: 20060612
  2. FOSAMAX [Suspect]
     Route: 048
     Dates: start: 20041201
  3. SYNTHROID [Concomitant]
     Route: 065
     Dates: start: 19981112
  4. HORMONES (UNSPECIFIED) [Concomitant]
     Route: 065
     Dates: start: 19890101, end: 20070801

REACTIONS (13)
  - ACCIDENT [None]
  - BENIGN NEOPLASM OF THYROID GLAND [None]
  - MENISCUS LESION [None]
  - ORAL INFECTION [None]
  - OSTEOARTHRITIS [None]
  - POSTNASAL DRIP [None]
  - RESORPTION BONE INCREASED [None]
  - SINUS DISORDER [None]
  - SKIN LESION [None]
  - THYROID DISORDER [None]
  - TOOTH DISORDER [None]
  - TOOTH EXTRACTION [None]
  - UTERINE DISORDER [None]
